FAERS Safety Report 11364329 (Version 1)
Quarter: 2015Q3

REPORT INFORMATION
  Report Type: Spontaneous
  Country: US (occurrence: None)
  Receive Date: 20150810
  Receipt Date: 20150810
  Transmission Date: 20151125
  Serious: Yes (Disabling)
  Sender: FDA-Public Use
  Company Number: None

PATIENT
  Age: 57 Year
  Sex: Female
  Weight: 63.5 kg

DRUGS (5)
  1. OSPHENA [Concomitant]
     Active Substance: OSPEMIFENE
  2. MULTI VITAMIN [Concomitant]
     Active Substance: VITAMINS
  3. CELEBREX [Concomitant]
     Active Substance: CELECOXIB
  4. CALCIUM [Concomitant]
     Active Substance: CALCIUM
  5. CELECOXIB 200MG LUPIN PHAR [Suspect]
     Active Substance: CELECOXIB
     Indication: RHEUMATOID ARTHRITIS
     Dosage: 2 PILLS
     Route: 048
     Dates: start: 20150701, end: 20150807

REACTIONS (2)
  - Product substitution issue [None]
  - Arthralgia [None]

NARRATIVE: CASE EVENT DATE: 20150807
